FAERS Safety Report 13851439 (Version 3)
Quarter: 2018Q2

REPORT INFORMATION
  Report Type: Spontaneous
  Country: US (occurrence: US)
  Receive Date: 20170809
  Receipt Date: 20180627
  Transmission Date: 20180711
  Serious: Yes (Death, Hospitalization, Other)
  Sender: FDA-Public Use
  Company Number: US-SAOL THERAPEUTICS-2017SAO01291

PATIENT
  Age: 45 Year
  Sex: Male
  Weight: 82.4 kg

DRUGS (2)
  1. LIORESAL [Suspect]
     Active Substance: BACLOFEN
     Indication: SPINAL CORD INJURY
     Dosage: 12.4 ?G, \DAY, MINIMUM RATE
     Route: 037
  2. LIORESAL [Suspect]
     Active Substance: BACLOFEN
     Indication: MUSCLE SPASTICITY
     Dosage: 1518 ?G, \DAY, ^FLEX^
     Route: 037

REACTIONS (5)
  - Hallucination [Unknown]
  - Drug withdrawal syndrome [Fatal]
  - Dizziness [Unknown]
  - Headache [Unknown]
  - Device failure [Not Recovered/Not Resolved]

NARRATIVE: CASE EVENT DATE: 20170727
